FAERS Safety Report 8623187-3 (Version None)
Quarter: 2012Q3

REPORT INFORMATION
  Report Type: 
  Country: None (occurrence: None)
  Receive Date: 20120827
  Receipt Date: 20120816
  Transmission Date: 20120928
  Serious: Yes (Hospitalization)
  Sender: FDA-Public Use
  Company Number: BR-SANOFI-AVENTIS-2012SA059381

PATIENT
  Age: 62 Year
  Sex: Female
  Weight: 60 kg

DRUGS (10)
  1. ATORVASTATIN [Concomitant]
     Route: 048
     Dates: start: 20050101
  2. DIOVAN [Concomitant]
     Indication: BLOOD PRESSURE
     Route: 048
     Dates: start: 20050101
  3. NOVORAPID [Concomitant]
     Dosage: DOSAGE/FREQUENCY: ACCOEDING TO GLYCEMIA
     Route: 058
     Dates: start: 20050101
  4. METFORMIN [Concomitant]
     Dosage: DOSE: 2 TAB
     Route: 048
     Dates: start: 20120101
  5. LANTUS [Suspect]
     Indication: TYPE 1 DIABETES MELLITUS
     Dosage: DOSE: 40 IU IN THE MORNING AND 10 IU AT NIGHT.
     Route: 058
     Dates: start: 20020101
  6. ASPIRIN [Concomitant]
     Route: 048
     Dates: start: 20050101
  7. AUTOPEN 24 [Suspect]
     Indication: DEVICE THERAPY
     Dates: start: 20020101
  8. ATENOLOL [Concomitant]
     Indication: BLOOD PRESSURE
     Route: 048
     Dates: start: 20050101
  9. OMEPRAZOLE [Concomitant]
     Indication: GASTRIC DISORDER
     Route: 048
     Dates: start: 20050101
  10. AMLODIPINE [Concomitant]
     Indication: BLOOD PRESSURE
     Route: 048
     Dates: start: 20120101

REACTIONS (6)
  - CARDIAC DISORDER [None]
  - OSTEOPENIA [None]
  - DIZZINESS [None]
  - VISION BLURRED [None]
  - BLOOD GLUCOSE INCREASED [None]
  - BLOOD GLUCOSE DECREASED [None]
